FAERS Safety Report 14720305 (Version 1)
Quarter: 2018Q2

REPORT INFORMATION
  Report Type: Spontaneous
  Country: US (occurrence: US)
  Receive Date: 20180405
  Receipt Date: 20180405
  Transmission Date: 20180711
  Serious: No
  Sender: FDA-Public Use
  Company Number: US-PFIZER INC-2018139587

PATIENT
  Sex: Female

DRUGS (2)
  1. SKELAXIN [Suspect]
     Active Substance: METAXALONE
     Dosage: UNK
  2. CELEBREX [Suspect]
     Active Substance: CELECOXIB
     Dosage: UNK

REACTIONS (2)
  - Fall [Unknown]
  - Fibromyalgia [Unknown]
